FAERS Safety Report 5781136-X (Version None)
Quarter: 2008Q2

REPORT INFORMATION
  Report Type: 
  Country: None (occurrence: None)
  Receive Date: 20080620
  Receipt Date: 20080602
  Transmission Date: 20081010
  Serious: Yes (Death, Other)
  Sender: FDA-Public Use
  Company Number: CA-PFIZER INC-2008050904

PATIENT
  Age: 56 Year
  Sex: Female

DRUGS (7)
  1. GABAPENTIN [Suspect]
     Route: 048
  2. MORPHINE SULFATE [Suspect]
  3. CODEINE [Suspect]
     Route: 042
  4. ACETAMINOPHEN [Suspect]
     Route: 048
  5. FLUOXETINE [Suspect]
     Route: 048
  6. ZOPICLONE [Suspect]
     Route: 048
  7. COCAINE [Suspect]

REACTIONS (2)
  - DRUG TOXICITY [None]
  - SUBSTANCE ABUSE [None]
